FAERS Safety Report 17593538 (Version 3)
Quarter: 2020Q2

REPORT INFORMATION
  Report Type: Spontaneous
  Country: US (occurrence: US)
  Receive Date: 20200327
  Receipt Date: 20200602
  Transmission Date: 20200713
  Serious: Yes (Other)
  Sender: FDA-Public Use
  Company Number: US-GILEAD-2020-0456880

PATIENT
  Age: 49 Year
  Sex: Male

DRUGS (25)
  1. EZETIMIBE. [Concomitant]
     Active Substance: EZETIMIBE
  2. INSULIN GLARGINE [Concomitant]
     Active Substance: INSULIN GLARGINE
  3. UREA. [Concomitant]
     Active Substance: UREA
  4. ATORVASTATIN [Concomitant]
     Active Substance: ATORVASTATIN
  5. NALTREXONE [Concomitant]
     Active Substance: NALTREXONE
  6. OMEPRAZOLE. [Concomitant]
     Active Substance: OMEPRAZOLE
  7. PENICILLIN [PENICILLIN NOS] [Concomitant]
     Active Substance: PENICILLIN
  8. BIKTARVY [Concomitant]
     Active Substance: BICTEGRAVIR SODIUM\EMTRICITABINE\TENOFOVIR ALAFENAMIDE FUMARATE
  9. DULOXETINE HCL [Concomitant]
     Active Substance: DULOXETINE HYDROCHLORIDE
  10. EMPAGLIFLOZIN [Concomitant]
     Active Substance: EMPAGLIFLOZIN
  11. FISH OIL [Concomitant]
     Active Substance: FISH OIL
  12. TRUVADA [Suspect]
     Active Substance: EMTRICITABINE\TENOFOVIR DISOPROXIL FUMARATE
     Indication: HIV INFECTION
     Dosage: 1 DOSAGE FORM (200-300 MG), QD
     Route: 048
     Dates: end: 2018
  13. ACETAMINOPHEN. [Concomitant]
     Active Substance: ACETAMINOPHEN
  14. BACLOFEN. [Concomitant]
     Active Substance: BACLOFEN
  15. DONEPEZIL. [Concomitant]
     Active Substance: DONEPEZIL
  16. DIVALPROEX [Concomitant]
     Active Substance: DIVALPROEX SODIUM
  17. GENVOYA [Concomitant]
     Active Substance: COBICISTAT\ELVITEGRAVIR\EMTRICITABINE\TENOFOVIR ALAFENAMIDE FUMARATE
     Indication: HIV INFECTION
     Dosage: 1 DOSAGE FORM, QD
     Route: 048
  18. LIRAGLUTIDE [Concomitant]
     Active Substance: LIRAGLUTIDE
  19. LISINOPRIL. [Concomitant]
     Active Substance: LISINOPRIL
  20. ONDANSETRON HCL [Concomitant]
     Active Substance: ONDANSETRON HYDROCHLORIDE
  21. DOXEPIN HCL [Concomitant]
     Active Substance: DOXEPIN HYDROCHLORIDE
  22. METOPROLOL TARTRATE. [Concomitant]
     Active Substance: METOPROLOL TARTRATE
  23. PIOGLITAZONE HCL [Concomitant]
     Active Substance: PIOGLITAZONE
  24. NAPROXEN. [Concomitant]
     Active Substance: NAPROXEN
  25. VIREAD [Suspect]
     Active Substance: TENOFOVIR DISOPROXIL FUMARATE
     Indication: HIV INFECTION
     Dosage: UNK
     Route: 065
     Dates: start: 2004, end: 2006

REACTIONS (3)
  - Chronic kidney disease [Not Recovered/Not Resolved]
  - Osteopenia [Not Recovered/Not Resolved]
  - Bone density decreased [Unknown]

NARRATIVE: CASE EVENT DATE: 201908
